FAERS Safety Report 10086019 (Version 2)
Quarter: 2014Q2

REPORT INFORMATION
  Report Type: Spontaneous
  Country: IT (occurrence: None)
  Receive Date: 20140416
  Receipt Date: 20140421
  Transmission Date: 20141212
  Serious: Yes (Other)
  Sender: FDA-Public Use
  Company Number: AUR-APL-2014-04614

PATIENT
  Age: 82 Year
  Sex: Female

DRUGS (7)
  1. METFORMIN [Suspect]
     Indication: DIABETES MELLITUS
     Dosage: 1 D
     Route: 048
     Dates: start: 20050204, end: 20131209
  2. SOLOSA [Suspect]
     Indication: DIABETES MELLITUS
     Dosage: 4 MG, 1 D
     Route: 048
     Dates: start: 20070517, end: 20131209
  3. EUTIROX [Concomitant]
  4. ENAPREN [Concomitant]
  5. NORVASC [Concomitant]
  6. AZOPT [Concomitant]
  7. SAFLUTAN [Concomitant]

REACTIONS (6)
  - Malaise [None]
  - Hyperhidrosis [None]
  - Asthenia [None]
  - Blood glucose decreased [None]
  - Blood urea increased [None]
  - Hypoglycaemia [None]
